FAERS Safety Report 24167197 (Version 1)
Quarter: 2024Q3

REPORT INFORMATION
  Report Type: Spontaneous
  Country: CA (occurrence: CA)
  Receive Date: 20240802
  Receipt Date: 20240802
  Transmission Date: 20241017
  Serious: Yes (Disabling)
  Sender: CELLTRION
  Company Number: CA-CELLTRION INC.-2022CA022711

PATIENT

DRUGS (1)
  1. TRUXIMA [Suspect]
     Active Substance: RITUXIMAB-ABBS
     Indication: Vasculitis
     Dosage: 1000 MILLIGRAM 1 DOSE
     Route: 042
     Dates: start: 20221123

REACTIONS (5)
  - Tibia fracture [Recovering/Resolving]
  - Infusion site extravasation [Unknown]
  - Infusion site discomfort [Unknown]
  - Off label use [Unknown]
  - Walking aid user [Unknown]

NARRATIVE: CASE EVENT DATE: 20221129
